FAERS Safety Report 15172083 (Version 1)
Quarter: 2018Q3

REPORT INFORMATION
  Report Type: Spontaneous
  Country: US (occurrence: US)
  Receive Date: 20180622
  Receipt Date: 20180622
  Transmission Date: 20181010
  Serious: Yes (Life-Threatening, Hospitalization)
  Sender: FDA-Public Use
  Company Number: None

PATIENT
  Age: 70 Year
  Sex: Female
  Weight: 87.7 kg

DRUGS (2)
  1. INVOKANA [Suspect]
     Active Substance: CANAGLIFLOZIN
     Indication: TYPE 2 DIABETES MELLITUS
     Route: 048
  2. METFORMIN?SITAGLIPTIN [Concomitant]
     Dates: start: 20100620, end: 20180620

REACTIONS (7)
  - Diabetic ketoacidosis [None]
  - Sepsis [None]
  - Pulmonary embolism [None]
  - Hyperglycaemia [None]
  - Metabolic acidosis [None]
  - Respiratory failure [None]
  - Pneumonia [None]

NARRATIVE: CASE EVENT DATE: 20180620
